FAERS Safety Report 6338077-9 (Version None)
Quarter: 2009Q3

REPORT INFORMATION
  Report Type: 
  Country: None (occurrence: None)
  Receive Date: 20090902
  Receipt Date: 20090825
  Transmission Date: 20100115
  Serious: Yes (Other)
  Sender: FDA-Public Use
  Company Number: PHHY2009DE36030

PATIENT
  Sex: Female

DRUGS (11)
  1. ZOMETA [Suspect]
     Indication: BREAST CANCER
     Dosage: EVERY 4 WEEKS
     Route: 042
     Dates: start: 20040101
  2. ZALDIAR [Concomitant]
  3. MOBLOC [Concomitant]
  4. TRIAMTEREN [Concomitant]
  5. CELESTAMINE TAB [Concomitant]
  6. POLARONIL [Concomitant]
  7. OXAZEPAM [Concomitant]
  8. FASLODEX [Concomitant]
  9. TAMOXIFEN CITRATE [Concomitant]
  10. LEFAX [Concomitant]
  11. DIAZEPAM [Concomitant]
     Dosage: AS NEEDED

REACTIONS (1)
  - OSTEONECROSIS [None]
